APPROVED DRUG PRODUCT: AMINOSYN 8.5%
Active Ingredient: AMINO ACIDS
Strength: 8.5% (8.5GM/100ML)
Dosage Form/Route: INJECTABLE;INJECTION
Application: N017673 | Product #004
Applicant: ICU MEDICAL INC
Approved: Approved Prior to Jan 1, 1982 | RLD: No | RS: No | Type: DISCN